FAERS Safety Report 9819571 (Version 4)
Quarter: 2014Q1

REPORT INFORMATION
  Report Type: Spontaneous
  Country: US (occurrence: None)
  Receive Date: 20140113
  Receipt Date: 20140212
  Transmission Date: 20141002
  Serious: Yes (Hospitalization)
  Sender: FDA-Public Use
  Company Number: 2013-US-005071

PATIENT
  Age: 88 Year
  Sex: Female

DRUGS (5)
  1. XYREM [Suspect]
     Indication: NARCOLEPSY
     Route: 048
     Dates: start: 200307
  2. XYREM [Suspect]
     Indication: CATAPLEXY
     Route: 048
     Dates: start: 200307
  3. PROVIGIL (MODAFINIL) [Concomitant]
  4. NARCO (ENIBOMAL SODIUM) [Concomitant]
  5. PERCOCET  (ACETAMINOPHEN AND OXYCODONE) [Concomitant]

REACTIONS (7)
  - Fall [None]
  - Rib fracture [None]
  - Asthenia [None]
  - Dizziness [None]
  - Pain [None]
  - Cataplexy [None]
  - Fatigue [None]
